FAERS Safety Report 8988362 (Version 1)
Quarter: 2012Q4

REPORT INFORMATION
  Report Type: Spontaneous
  Country: TR (occurrence: None)
  Receive Date: 20121218
  Receipt Date: 20121218
  Transmission Date: 20130627
  Serious: Yes (Other)
  Sender: FDA-Public Use
  Company Number: TR-ACCORD-015552

PATIENT

DRUGS (3)
  1. TACROLIMUS [Suspect]
     Indication: RENAL TRANSPLANT
  2. ERTAPENEM [Suspect]
     Indication: URINARY TRACT INFECTION
     Route: 042
  3. MYFORTIC (MYFORTIC) [Concomitant]

REACTIONS (2)
  - Drug interaction [None]
  - Immunosuppressant drug level increased [None]
